FAERS Safety Report 8227851-X (Version None)
Quarter: 2012Q1

REPORT INFORMATION
  Report Type: 
  Country: None (occurrence: None)
  Receive Date: 20120322
  Receipt Date: 20120308
  Transmission Date: 20120608
  Serious: Yes (Hospitalization, Other)
  Sender: FDA-Public Use
  Company Number: GB-ROCHE-1042580

PATIENT
  Age: 72 Year
  Sex: Male

DRUGS (1)
  1. AVASTIN [Suspect]
     Indication: RETINAL VEIN OCCLUSION
     Route: 031
     Dates: start: 20120227, end: 20120227

REACTIONS (4)
  - HYPOPYON [None]
  - DISCOMFORT [None]
  - VISION BLURRED [None]
  - PSEUDOENDOPHTHALMITIS [None]
